FAERS Safety Report 9629937 (Version 1)
Quarter: 2013Q4

REPORT INFORMATION
  Report Type: Spontaneous
  Country: US (occurrence: US)
  Receive Date: 20131017
  Receipt Date: 20131017
  Transmission Date: 20140711
  Serious: Yes (Other)
  Sender: FDA-Public Use
  Company Number: US-AMGEN-USASP2013072134

PATIENT
  Age: 69 Year
  Sex: Male

DRUGS (2)
  1. NEUPOGEN [Suspect]
     Indication: INFECTION PROPHYLAXIS
     Dosage: UNK UNK, AFTER CHEMO ON DAYS 2, 3, 4, 9, 10, 11
     Route: 065
  2. VELCADE [Concomitant]
     Indication: PLASMA CELL MYELOMA
     Dosage: UNK ON DAY 1 AND DAY 8 OF A 21 DAY CYCLE

REACTIONS (1)
  - Adenocarcinoma of appendix [Unknown]
